FAERS Safety Report 19894067 (Version 2)
Quarter: 2021Q4

REPORT INFORMATION
  Report Type: Spontaneous
  Country: US (occurrence: US)
  Receive Date: 20210928
  Receipt Date: 20211013
  Transmission Date: 20220303
  Serious: No
  Sender: FDA-Public Use
  Company Number: US-JNJFOC-20210921916

PATIENT
  Age: 44 Year

DRUGS (1)
  1. WOMENS ROGAINE UNSCENTED [Suspect]
     Active Substance: MINOXIDIL
     Indication: Product used for unknown indication
     Dosage: OVER 3/4 OF THE CAN
     Route: 065
     Dates: start: 202108

REACTIONS (4)
  - Hair growth abnormal [Not Recovered/Not Resolved]
  - Hair disorder [Recovered/Resolved]
  - Product residue present [Recovered/Resolved]
  - Overdose [Unknown]

NARRATIVE: CASE EVENT DATE: 20210801
